FAERS Safety Report 6557187-4 (Version None)
Quarter: 2010Q1

REPORT INFORMATION
  Report Type: 
  Country: None (occurrence: None)
  Receive Date: 20100127
  Receipt Date: 20100127
  Transmission Date: 20100710
  Serious: Yes (Hospitalization)
  Sender: FDA-Public Use
  Company Number: None

PATIENT
  Age: 44 Year
  Sex: Female
  Weight: 59.9 kg

DRUGS (1)
  1. MORPHINE [Suspect]
     Indication: POSTOPERATIVE CARE
     Dosage: 1 MG ONCE IV
     Route: 042
     Dates: start: 20091214, end: 20091214

REACTIONS (2)
  - NAUSEA [None]
  - VOMITING [None]
